FAERS Safety Report 7588396-3 (Version None)
Quarter: 2011Q2

REPORT INFORMATION
  Report Type: 
  Country: None (occurrence: None)
  Receive Date: 20110627
  Receipt Date: 20110614
  Transmission Date: 20111010
  Serious: Yes (Hospitalization)
  Sender: FDA-Public Use
  Company Number: 952089

PATIENT
  Age: 16 Year
  Sex: Male

DRUGS (9)
  1. TOBRAMYCIN [Suspect]
     Indication: POST PROCEDURAL INFECTION
     Dosage: 7.2 G, OTHER
     Route: 050
  2. TOBRAMYCIN [Suspect]
     Indication: SPINAL FUSION SURGERY
     Dosage: 7.2 G, OTHER
     Route: 050
  3. CEFOXITIN SODIUM [Suspect]
     Indication: SPINAL FUSION SURGERY
     Dosage: 12 G, OTHER
     Route: 050
  4. CEFOXITIN SODIUM [Suspect]
     Indication: POST PROCEDURAL INFECTION
     Dosage: 12 G, OTHER
     Route: 050
  5. PIPERACILLIN AND TAZOBACTAM [Suspect]
     Indication: SPINAL FUSION SURGERY
     Dosage: \INTRAVENOUS (NOT OTHERWISE SPECIFIED)
     Route: 042
  6. PIPERACILLIN AND TAZOBACTAM [Suspect]
     Indication: POST PROCEDURAL INFECTION
     Dosage: \INTRAVENOUS (NOT OTHERWISE SPECIFIED)
     Route: 042
  7. VANCOMYCIN HYCHLORIDE [Suspect]
     Indication: POST PROCEDURAL INFECTION
     Dosage: 8 G, OTHER
     Route: 050
  8. VANCOMYCIN HYCHLORIDE [Suspect]
     Indication: SPINAL FUSION SURGERY
     Dosage: 8 G, OTHER
     Route: 050
  9. (KETOROLAC TROMETAMOL) [Suspect]
     Indication: PAIN
     Dosage: OTHER
     Route: 050

REACTIONS (4)
  - PROCEDURAL HYPOTENSION [None]
  - TOXICITY TO VARIOUS AGENTS [None]
  - RENAL FAILURE ACUTE [None]
  - HAEMODIALYSIS [None]
